FAERS Safety Report 6365759-5 (Version None)
Quarter: 2009Q3

REPORT INFORMATION
  Report Type: 
  Country: None (occurrence: None)
  Receive Date: 20090919
  Receipt Date: 20090818
  Transmission Date: 20100115
  Serious: No
  Sender: FDA-Public Use
  Company Number: US-ABBOTT-09P-163-0592852-00

PATIENT
  Sex: Female

DRUGS (5)
  1. HUMIRA [Suspect]
     Indication: POLYARTHRITIS
     Route: 058
     Dates: start: 20090801
  2. IMURAN [Concomitant]
     Indication: HEPATITIS
     Route: 048
  3. PREDNISOLONE [Concomitant]
     Indication: POLYARTHRITIS
     Route: 048
     Dates: start: 20071001
  4. PROTONIX [Concomitant]
     Indication: GASTROOESOPHAGEAL REFLUX DISEASE
     Route: 048
  5. SPIRONOLACTONE [Concomitant]
     Indication: ADVERSE DRUG REACTION
     Route: 048

REACTIONS (1)
  - DRUG DOSE OMISSION [None]
